APPROVED DRUG PRODUCT: SERTRALINE HYDROCHLORIDE
Active Ingredient: SERTRALINE HYDROCHLORIDE
Strength: EQ 25MG BASE
Dosage Form/Route: TABLET;ORAL
Application: A202825 | Product #001 | TE Code: AB
Applicant: ACCORD HEALTHCARE INC
Approved: Nov 7, 2014 | RLD: No | RS: No | Type: RX